FAERS Safety Report 18997691 (Version 1)
Quarter: 2021Q1

REPORT INFORMATION
  Report Type: Spontaneous
  Country: CA (occurrence: CA)
  Receive Date: 20210311
  Receipt Date: 20210311
  Transmission Date: 20210420
  Serious: Yes (Other)
  Sender: FDA-Public Use
  Company Number: CA-ROCHE-2784757

PATIENT

DRUGS (6)
  1. LEVOMEPROMAZINE MALEATE [Suspect]
     Active Substance: LEVOMEPROMAZINE MALEATE
     Indication: POOR QUALITY SLEEP
     Route: 065
  2. QUETIAPINE. [Suspect]
     Active Substance: QUETIAPINE
     Indication: POOR QUALITY SLEEP
     Route: 048
  3. OXAZEPAM. [Suspect]
     Active Substance: OXAZEPAM
     Indication: POOR QUALITY SLEEP
     Route: 065
  4. TEMAZEPAM. [Suspect]
     Active Substance: TEMAZEPAM
     Indication: POOR QUALITY SLEEP
     Route: 065
  5. RIVOTRIL [Suspect]
     Active Substance: CLONAZEPAM
     Indication: POOR QUALITY SLEEP
     Route: 048
  6. ZOPICLONE [Suspect]
     Active Substance: ZOPICLONE
     Indication: POOR QUALITY SLEEP
     Route: 048

REACTIONS (3)
  - Drug interaction [Unknown]
  - Drug ineffective [Unknown]
  - No adverse event [Unknown]
